FAERS Safety Report 23518853 (Version 2)
Quarter: 2024Q1

REPORT INFORMATION
  Report Type: Report from Study
  Country: DE (occurrence: DE)
  Receive Date: 20240213
  Receipt Date: 20240327
  Transmission Date: 20240409
  Serious: Yes (Hospitalization)
  Sender: FDA-Public Use
  Company Number: DE-009507513-2401DEU016818

PATIENT
  Sex: Male
  Weight: 68 kg

DRUGS (13)
  1. PEMETREXED [Suspect]
     Active Substance: PEMETREXED
     Indication: Non-small cell lung cancer
     Dosage: 936 MILLIGRAM, 1ST LINE
     Route: 065
     Dates: start: 20230510, end: 20231229
  2. PEMETREXED [Suspect]
     Active Substance: PEMETREXED
     Dosage: 888 MILLIGRAM
     Route: 065
     Dates: start: 20231229, end: 20231229
  3. PEMBROLIZUMAB [Suspect]
     Active Substance: PEMBROLIZUMAB
     Indication: Non-small cell lung cancer
     Dosage: 200 MILLIGRAM, 1ST LINE
     Route: 042
     Dates: start: 20230510, end: 20231229
  4. PEMBROLIZUMAB [Suspect]
     Active Substance: PEMBROLIZUMAB
     Dosage: 200 MILLIGRAM
     Route: 042
     Dates: start: 20231229, end: 20231229
  5. ONDANSETRON [Concomitant]
     Active Substance: ONDANSETRON
     Dosage: ON THE DAY OF THERAPY
     Route: 065
  6. PANTOPRAZOLE [Concomitant]
     Active Substance: PANTOPRAZOLE
     Dosage: UNK
     Route: 065
  7. POLYETHYLENE GLYCOLS [Concomitant]
     Active Substance: POLYETHYLENE GLYCOLS
     Dosage: UNK
     Route: 065
  8. DEXAMETHASONE [Concomitant]
     Active Substance: DEXAMETHASONE
     Dosage: UNK, (ONLY FOR THERAPY DAY - 1; 1; 2)
     Route: 065
  9. CHOLECALCIFEROL [Concomitant]
     Active Substance: CHOLECALCIFEROL
     Dosage: UNK
     Route: 065
  10. ABSTRAL [Concomitant]
     Active Substance: FENTANYL CITRATE
     Dosage: 300 MILLIGRAM, Q4H
     Route: 065
  11. SMAT [Concomitant]
     Dosage: UNK
     Route: 065
  12. ERYTHROPOIETIN [Concomitant]
     Active Substance: ERYTHROPOIETIN
     Dosage: 1 DOSAGE FORM, QW (1X WEEKLY)
     Route: 065
  13. METAMIZOLE [Concomitant]
     Active Substance: METAMIZOLE
     Dosage: UNK
     Route: 065

REACTIONS (1)
  - Haemoptysis [Recovered/Resolved]

NARRATIVE: CASE EVENT DATE: 20240125
